FAERS Safety Report 9399115 (Version 1)
Quarter: 2013Q3

REPORT INFORMATION
  Report Type: Report from Study
  Country: CA (occurrence: CA)
  Receive Date: 20130715
  Receipt Date: 20130715
  Transmission Date: 20140515
  Serious: Yes (Hospitalization, Other)
  Sender: FDA-Public Use
  Company Number: CA-ROCHE-1245631

PATIENT
  Age: 46 Year
  Sex: Female

DRUGS (7)
  1. CAPECITABINE [Suspect]
     Indication: PRODUCT USED FOR UNKNOWN INDICATION
     Dosage: TABLET
     Route: 065
  2. LAPATINIB DITOSYLATE [Suspect]
     Indication: PRODUCT USED FOR UNKNOWN INDICATION
     Dosage: TABLET
     Route: 048
  3. TRASTUZUMAB [Concomitant]
     Dosage: POWDER FOR SOLUTION INTRAVENOUS
     Route: 065
  4. AREDIA [Concomitant]
     Dosage: POWDER FOR SOLUTION INTRAVENOUS
     Route: 065
  5. AROMASIN [Concomitant]
     Dosage: TABLET
     Route: 065
  6. SEROQUEL [Concomitant]
     Dosage: TABLET
     Route: 065
  7. ZOLADEX [Concomitant]
     Route: 065

REACTIONS (12)
  - Abdominal pain [Unknown]
  - Amnesia [Unknown]
  - Back pain [Unknown]
  - Cognitive disorder [Unknown]
  - Dizziness [Unknown]
  - Enterocolitis [Unknown]
  - Eyelid skin dryness [Unknown]
  - Fatigue [Unknown]
  - Metastases to bone [Unknown]
  - Metastases to lung [Unknown]
  - Neoplasm [Unknown]
  - Rash pruritic [Unknown]
